FAERS Safety Report 7954286-7 (Version None)
Quarter: 2011Q4

REPORT INFORMATION
  Report Type: 
  Country: None (occurrence: None)
  Receive Date: 20111202
  Receipt Date: 20111129
  Transmission Date: 20120403
  Serious: No
  Sender: FDA-Public Use
  Company Number: US-PFIZER INC-2011291537

PATIENT
  Sex: Male

DRUGS (2)
  1. AZITHROMYCIN [Suspect]
     Indication: PHARYNGITIS
  2. AZITHROMYCIN [Suspect]
     Indication: SINUSITIS
     Dosage: 500 MG, UNK
     Route: 048

REACTIONS (3)
  - BURNING MOUTH SYNDROME [None]
  - DRY MOUTH [None]
  - DRY THROAT [None]
